FAERS Safety Report 7972462-4 (Version None)
Quarter: 2011Q4

REPORT INFORMATION
  Report Type: 
  Country: None (occurrence: None)
  Receive Date: 20111213
  Receipt Date: 20111205
  Transmission Date: 20120403
  Serious: No
  Sender: FDA-Public Use
  Company Number: US-BIOGENIDEC-2011BI045898

PATIENT
  Sex: Male

DRUGS (3)
  1. AVONEX [Suspect]
     Indication: MULTIPLE SCLEROSIS
     Route: 030
     Dates: start: 20060921, end: 20061121
  2. AVONEX [Suspect]
     Route: 030
     Dates: start: 20080616, end: 20090701
  3. AVONEX [Suspect]
     Route: 030
     Dates: start: 20091123, end: 20110101

REACTIONS (1)
  - COORDINATION ABNORMAL [None]
